FAERS Safety Report 19460130 (Version 1)
Quarter: 2021Q2

REPORT INFORMATION
  Report Type: Report from Study
  Country: US (occurrence: US)
  Receive Date: 20210625
  Receipt Date: 20210625
  Transmission Date: 20210717
  Serious: No
  Sender: FDA-Public Use
  Company Number: US-ACADIA PHARMACEUTICALS INC.-ACA-2021-PIM-002052

PATIENT
  Age: 68 Year
  Sex: Male

DRUGS (16)
  1. MILK OF MAGNESIA [Concomitant]
     Active Substance: MAGNESIUM HYDROXIDE
  2. ALEVE [Concomitant]
     Active Substance: NAPROXEN SODIUM
  3. ATENOLOL. [Concomitant]
     Active Substance: ATENOLOL
  4. NUPLAZID [Suspect]
     Active Substance: PIMAVANSERIN TARTRATE
     Indication: HALLUCINATION
  5. CARBIDOPA/LEVODOPA [Concomitant]
     Active Substance: CARBIDOPA\LEVODOPA
  6. NOURIANZ [Concomitant]
     Active Substance: ISTRADEFYLLINE
  7. NUPLAZID [Suspect]
     Active Substance: PIMAVANSERIN TARTRATE
     Indication: PARKINSON^S DISEASE
     Dosage: 34 MILLIGRAM, QD
     Route: 048
  8. GABAPENTIN. [Concomitant]
     Active Substance: GABAPENTIN
  9. TAMSULOSIN [Concomitant]
     Active Substance: TAMSULOSIN
  10. MYRBETRIQ [Concomitant]
     Active Substance: MIRABEGRON
  11. ALKA SELTZER [ACETYLSALICYLIC ACID] [Concomitant]
  12. AMLODIPINE [Concomitant]
     Active Substance: AMLODIPINE BESYLATE
  13. LISINOPRIL. [Concomitant]
     Active Substance: LISINOPRIL
  14. METFORMIN [Concomitant]
     Active Substance: METFORMIN HYDROCHLORIDE
  15. SENNA [SENNA ALEXANDRINA] [Concomitant]
     Active Substance: SENNA LEAF
  16. TRAZODONE [Concomitant]
     Active Substance: TRAZODONE HYDROCHLORIDE

REACTIONS (4)
  - Peripheral swelling [Not Recovered/Not Resolved]
  - Hallucination [Not Recovered/Not Resolved]
  - Gait disturbance [Not Recovered/Not Resolved]
  - Pain in extremity [Not Recovered/Not Resolved]

NARRATIVE: CASE EVENT DATE: 202105
